FAERS Safety Report 20220320 (Version 2)
Quarter: 2022Q1

REPORT INFORMATION
  Report Type: Spontaneous
  Country: ES (occurrence: ES)
  Receive Date: 20211223
  Receipt Date: 20220216
  Transmission Date: 20220423
  Serious: Yes (Death, Other)
  Sender: FDA-Public Use
  Company Number: ES-SA-SAC20211220000483

PATIENT

DRUGS (1)
  1. LIBTAYO [Suspect]
     Active Substance: CEMIPLIMAB-RWLC
     Indication: Cervix carcinoma
     Dosage: 350 MG, Q3W
     Dates: start: 20211029, end: 20211119

REACTIONS (2)
  - Cervix carcinoma [Fatal]
  - Disease progression [Fatal]
